FAERS Safety Report 4549370-4 (Version None)
Quarter: 2005Q1

REPORT INFORMATION
  Report Type: 
  Country: None (occurrence: None)
  Receive Date: 20050106
  Receipt Date: 20041223
  Transmission Date: 20050727
  Serious: Yes (Death, Other)
  Sender: FDA-Public Use
  Company Number: 200410544BCA

PATIENT
  Age: 59 Year
  Sex: Male

DRUGS (6)
  1. CIPROFLOXACIN [Suspect]
     Indication: COLITIS
     Dosage: ORAL
     Route: 048
  2. CIPROFLOXACIN [Suspect]
     Indication: CONDITION AGGRAVATED
     Dosage: ORAL
     Route: 048
  3. CIPROFLOXACIN [Suspect]
     Indication: PYREXIA
     Dosage: ORAL
     Route: 048
  4. ASACOL [Concomitant]
  5. FLAGYL [Concomitant]
  6. PREDNISONE [Concomitant]

REACTIONS (6)
  - ANOREXIA [None]
  - COAGULOPATHY [None]
  - DIARRHOEA [None]
  - FATIGUE [None]
  - HEPATIC FAILURE [None]
  - PYREXIA [None]
